FAERS Safety Report 17579676 (Version 1)
Quarter: 2020Q1

REPORT INFORMATION
  Report Type: Spontaneous
  Country: US (occurrence: US)
  Receive Date: 20200324
  Receipt Date: 20200324
  Transmission Date: 20200409
  Serious: Yes (Other)
  Sender: FDA-Public Use
  Company Number: None

PATIENT
  Age: 68 Year
  Sex: Female
  Weight: 95.85 kg

DRUGS (9)
  1. PREDNISONE. [Concomitant]
     Active Substance: PREDNISONE
  2. RAYOS [Suspect]
     Active Substance: PREDNISONE
     Indication: MUSCLE DISORDER
     Dosage: ?          QUANTITY:1 TABLET(S);?
     Route: 048
     Dates: start: 20200313, end: 20200313
  3. LOSARTAN. [Concomitant]
     Active Substance: LOSARTAN
  4. AMLODIPINE BEYSELATE [Concomitant]
  5. TYLENOL [Concomitant]
     Active Substance: ACETAMINOPHEN
  6. LEVOTHYROXINE. [Concomitant]
     Active Substance: LEVOTHYROXINE
  7. ALEVE [Concomitant]
     Active Substance: NAPROXEN SODIUM
  8. VIT D [Concomitant]
     Active Substance: VITAMIN D NOS
  9. FAMOMETIDINE [Concomitant]

REACTIONS (6)
  - Product substitution issue [None]
  - Nausea [None]
  - Asthenia [None]
  - Product physical issue [None]
  - Drooling [None]
  - Blood pressure increased [None]

NARRATIVE: CASE EVENT DATE: 20200313
